FAERS Safety Report 10364127 (Version 3)
Quarter: 2014Q3

REPORT INFORMATION
  Report Type: Spontaneous
  Country: US (occurrence: US)
  Receive Date: 20140806
  Receipt Date: 20140905
  Transmission Date: 20150326
  Serious: Yes (Other)
  Sender: FDA-Public Use
  Company Number: US-AMGEN INC.-USASP2014058936

PATIENT
  Age: 62 Year
  Sex: Female
  Weight: 107.94 kg

DRUGS (1)
  1. ENBREL [Suspect]
     Active Substance: ETANERCEPT
     Indication: RHEUMATOID ARTHRITIS
     Dosage: 50 MG, QWK
     Route: 030
     Dates: start: 201403, end: 20140616

REACTIONS (15)
  - Incorrect route of drug administration [Unknown]
  - Peripheral swelling [Not Recovered/Not Resolved]
  - Wrist fracture [Recovered/Resolved]
  - Injection site reaction [Recovering/Resolving]
  - Contusion [Recovered/Resolved]
  - Vitamin D deficiency [Not Recovered/Not Resolved]
  - Injection site bruising [Recovered/Resolved]
  - Back pain [Not Recovered/Not Resolved]
  - Cough [Not Recovered/Not Resolved]
  - Adverse event [Unknown]
  - Sinusitis [Not Recovered/Not Resolved]
  - Road traffic accident [Recovered/Resolved]
  - Injection site erythema [Recovered/Resolved]
  - Oedema peripheral [Recovering/Resolving]
  - Dyspnoea [Not Recovered/Not Resolved]

NARRATIVE: CASE EVENT DATE: 2014
